FAERS Safety Report 11820817 (Version 1)
Quarter: 2015Q4

REPORT INFORMATION
  Report Type: Spontaneous
  Country: US (occurrence: US)
  Receive Date: 20151210
  Receipt Date: 20151210
  Transmission Date: 20160305
  Serious: No
  Sender: FDA-Public Use
  Company Number: US-JNJFOC-20150314054

PATIENT
  Age: 81 Year
  Sex: Female
  Weight: 61 kg

DRUGS (22)
  1. MAGNESIUM [Concomitant]
     Active Substance: MAGNESIUM
     Route: 048
  2. MEGACE [Concomitant]
     Active Substance: MEGESTROL ACETATE
     Route: 048
  3. COMBIGAN [Concomitant]
     Active Substance: BRIMONIDINE TARTRATE\TIMOLOL MALEATE
     Dosage: ONE DROP RIGHT EYE
     Route: 047
  4. SODIUM CHLORIDE. [Concomitant]
     Active Substance: SODIUM CHLORIDE
     Dosage: Q MONTHLY PRN
     Route: 042
  5. FASLODEX [Concomitant]
     Active Substance: FULVESTRANT
  6. GLUCOSAMINE / CHONDROITIN [Concomitant]
     Dosage: 500-400 MG
     Route: 048
  7. CORTISPORIN EYE [Concomitant]
     Dosage: 0.5 INCHES, DAILY AT BEDTIME
     Route: 047
  8. IMBRUVICA [Suspect]
     Active Substance: IBRUTINIB
     Indication: CHRONIC LYMPHOCYTIC LEUKAEMIA
     Route: 048
     Dates: start: 20140116, end: 20150106
  9. LOPRESSOR [Concomitant]
     Active Substance: METOPROLOL TARTRATE
     Route: 048
  10. NOLVADEX [Concomitant]
     Active Substance: TAMOXIFEN CITRATE
     Route: 048
  11. ARIMIDEX [Concomitant]
     Active Substance: ANASTROZOLE
  12. TOPROL XL [Concomitant]
     Active Substance: METOPROLOL SUCCINATE
  13. CALCIUM AND VIT D [Concomitant]
     Active Substance: CALCIUM\VITAMIN D
     Dosage: ONE TO TWO TABLETS
     Route: 048
  14. COMPAZINE [Concomitant]
     Active Substance: PROCHLORPERAZINE MALEATE
     Dosage: 10 MG, PRN Q 4-6 HRS
     Route: 048
  15. HEPARIN FLUSH [Concomitant]
     Dosage: 500 UNIT, Q MONTLY 5ML PRN
     Route: 042
  16. COLACE [Concomitant]
     Active Substance: DOCUSATE SODIUM
     Dosage: 100 MG, QD PRN
     Route: 048
  17. ZOFRAN [Concomitant]
     Active Substance: ONDANSETRON HYDROCHLORIDE
     Dosage: 8 MG Q8HRS PRN
     Route: 048
  18. TAMOXIFEN [Concomitant]
     Active Substance: TAMOXIFEN
  19. IMBRUVICA [Suspect]
     Active Substance: IBRUTINIB
     Indication: CHRONIC LYMPHOCYTIC LEUKAEMIA
     Route: 048
     Dates: start: 20150107
  20. ASPIRIN. [Concomitant]
     Active Substance: ASPIRIN
     Route: 048
  21. XALATAN [Concomitant]
     Active Substance: LATANOPROST
     Dosage: ONE DROP BOTH EYES
     Route: 047
  22. IMODIUM [Concomitant]
     Active Substance: LOPERAMIDE HYDROCHLORIDE
     Route: 048

REACTIONS (2)
  - Carbohydrate antigen 27.29 increased [Unknown]
  - Atrial fibrillation [Unknown]

NARRATIVE: CASE EVENT DATE: 20141219
